FAERS Safety Report 9032411 (Version 1)
Quarter: 2013Q1

REPORT INFORMATION
  Report Type: Spontaneous
  Country: LK (occurrence: None)
  Receive Date: 20130108
  Receipt Date: 20130108
  Transmission Date: 20140127
  Serious: Yes (Life-Threatening, Hospitalization, Disabling)
  Sender: FDA-Public Use
  Company Number: 2012P1068353

PATIENT
  Age: 42 Year
  Sex: Male

DRUGS (2)
  1. EPINEPHRINE [Suspect]
     Indication: ANAESTHESIA
     Dosage: X1; DENT
     Route: 004
  2. EPINEPHRINE [Suspect]
     Indication: TOOTH EXTRACTION
     Dosage: X1; DENT
     Route: 004

REACTIONS (16)
  - Chest pain [None]
  - Palpitations [None]
  - Headache [None]
  - Loss of consciousness [None]
  - Fall [None]
  - Electrocardiogram T wave inversion [None]
  - Troponin T increased [None]
  - Blood creatine phosphokinase increased [None]
  - Muscular weakness [None]
  - Hypotonia [None]
  - Tremor [None]
  - Fatigue [None]
  - Dyspnoea exertional [None]
  - Gait disturbance [None]
  - Wrong drug administered [None]
  - Accidental overdose [None]
